FAERS Safety Report 20409316 (Version 1)
Quarter: 2022Q1

REPORT INFORMATION
  Report Type: Spontaneous
  Country: SE (occurrence: SE)
  Receive Date: 20220201
  Receipt Date: 20220201
  Transmission Date: 20220423
  Serious: Yes (Hospitalization, Other)
  Sender: FDA-Public Use
  Company Number: None

PATIENT
  Age: 52 Year
  Sex: Male

DRUGS (15)
  1. CLOZAPINE [Suspect]
     Active Substance: CLOZAPINE
     Indication: Psychotic disorder
     Route: 048
     Dates: end: 20211125
  2. ZOPICLONE [Concomitant]
     Active Substance: ZOPICLONE
     Dosage: 7.5 MG 1 AS REQUIRED
  3. TRIMEPRAZINE [Concomitant]
     Active Substance: TRIMEPRAZINE
     Dosage: 40 MG/ML AS REQUIRED
     Route: 048
  4. PROMETHAZINE HYDROCHLORIDE\THIOUREA [Concomitant]
     Active Substance: PROMETHAZINE HYDROCHLORIDE\THIOUREA
     Dosage: 50 MG 1+1+1
     Route: 048
  5. ECONAZOLE NITRATE [Concomitant]
     Active Substance: ECONAZOLE NITRATE
     Dosage: 1% 1X2
     Route: 003
  6. AKINETON [Concomitant]
     Active Substance: BIPERIDEN HYDROCHLORIDE
     Dosage: 2 MG 1 AS REQUIRED
     Route: 048
  7. ATARAX [Concomitant]
     Active Substance: HYDROXYZINE HYDROCHLORIDE
     Dosage: 25 MG 1 AS REQUIRED
     Route: 048
  8. DIAZEPAM [Concomitant]
     Active Substance: DIAZEPAM
     Dosage: 5 MG 1 AS REQUIRED
     Route: 048
  9. PHENOXYMETHYLPENICILLIN CALCIUM [Concomitant]
     Active Substance: PHENOXYMETHYLPENICILLIN CALCIUM
     Dosage: 1 G 1X3
     Route: 048
     Dates: end: 20211124
  10. ENALAPRIL [Concomitant]
     Active Substance: ENALAPRIL
     Dosage: 10 MG 1X1
     Route: 048
  11. PROPIOMAZINE [Concomitant]
     Active Substance: PROPIOMAZINE
     Dosage: 25 MG 1 AS REQUIRED
     Route: 048
  12. FRAGMIN [Concomitant]
     Active Substance: DALTEPARIN SODIUM
     Dosage: 5000 IE
     Route: 058
  13. Furix [Concomitant]
     Dosage: 20 MG 2+2+2+0
     Route: 048
  14. ATORVASTATIN [Concomitant]
     Active Substance: ATORVASTATIN
     Dosage: 40 MG 1X1
     Route: 048
  15. OLANZAPINE [Concomitant]
     Active Substance: OLANZAPINE
     Dosage: 15 MG 0+1
     Route: 048

REACTIONS (1)
  - Nephrotic syndrome [Recovering/Resolving]

NARRATIVE: CASE EVENT DATE: 20211111
